FAERS Safety Report 26022697 (Version 2)
Quarter: 2025Q4

REPORT INFORMATION
  Report Type: Report from Study
  Country: US (occurrence: US)
  Receive Date: 20251110
  Receipt Date: 20251230
  Transmission Date: 20260118
  Serious: No
  Sender: AIMMUNE
  Company Number: US-ZENPEP LLC-2025AIMT01199

PATIENT

DRUGS (17)
  1. ZENPEP [Suspect]
     Active Substance: PANCRELIPASE AMYLASE\PANCRELIPASE LIPASE\PANCRELIPASE PROTEASE
     Indication: Pancreatic failure
     Dosage: 60,000 UNITS, 3X/DAY
     Route: 048
     Dates: start: 20250311
  2. ZENPEP [Suspect]
     Active Substance: PANCRELIPASE AMYLASE\PANCRELIPASE LIPASE\PANCRELIPASE PROTEASE
     Dosage: 60,000 UNITS, ONCE, LAST DOSE PRIOR TO EVENT
     Route: 048
  3. IMODIUM [Concomitant]
     Active Substance: LOPERAMIDE HYDROCHLORIDE
     Indication: Diarrhoea
  4. NEURONTIN [Concomitant]
     Active Substance: GABAPENTIN
     Indication: Product used for unknown indication
     Dosage: 300 MG 2X/DAY; 2 CAPSULES EVERY MORNING AND 1 CAPSULE EVERY NIGHT
     Route: 048
  5. BENICAR [Concomitant]
     Active Substance: OLMESARTAN MEDOXOMIL
     Indication: Product used for unknown indication
     Dosage: 20 MG, 1X/DAY
     Route: 048
     Dates: start: 20211201
  6. BENICAR [Concomitant]
     Active Substance: OLMESARTAN MEDOXOMIL
     Dosage: 20 MG, 3X/WEEK
     Route: 048
  7. IMODIUM A-D [Concomitant]
     Active Substance: LOPERAMIDE HYDROCHLORIDE
     Indication: Product used for unknown indication
     Route: 048
  8. CRESTOR [Concomitant]
     Active Substance: ROSUVASTATIN CALCIUM
     Indication: Product used for unknown indication
     Dosage: 5 MG, 1X/DAY
     Route: 048
  9. AMBIEN [Concomitant]
     Active Substance: ZOLPIDEM TARTRATE
     Indication: Sleep disorder
     Dosage: 5 MG, AS NEEDED, AT NIGHT
     Route: 048
  10. MELATONIN [Concomitant]
     Active Substance: MELATONIN
     Indication: Product used for unknown indication
     Dosage: 5 MG CAPSULE
     Route: 048
  11. PANCREASE [PANCREATIN] [Concomitant]
     Indication: Decreased appetite
     Dosage: HIGH DOSE WITH 3 MEALS
  12. PANCREASE [PANCREATIN] [Concomitant]
     Indication: Diarrhoea
  13. FLEXERIL [Concomitant]
     Active Substance: CYCLOBENZAPRINE HYDROCHLORIDE
     Indication: Product used for unknown indication
     Dosage: 5 MG, 1X/DAY, AT BEDTIME
     Route: 048
     Dates: start: 20250102
  14. MOBIC [Concomitant]
     Active Substance: MELOXICAM
     Indication: Product used for unknown indication
     Dosage: 15 MG, 1X/DAY
     Route: 048
     Dates: start: 20250226
  15. DYRENIUM [Concomitant]
     Active Substance: TRIAMTERENE
     Indication: Product used for unknown indication
     Dosage: 50 MG, AS NEEDED
     Route: 048
  16. KEFLEX [Concomitant]
     Active Substance: CEPHALEXIN
     Indication: Product used for unknown indication
     Dosage: 500 MG, 4X/DAY
     Route: 048
     Dates: start: 20250523, end: 20250602
  17. CREON [Concomitant]
     Active Substance: PANCRELIPASE AMYLASE\PANCRELIPASE LIPASE\PANCRELIPASE PROTEASE
     Indication: Product used for unknown indication
     Dosage: 36,000 UNITS, 2X/DAY; 2 CAPSULES BEFORE EACH MEAL AND ONE WITH SNACK
     Route: 048
     Dates: start: 20250516

REACTIONS (8)
  - White blood cell count decreased [Unknown]
  - Haemoglobin decreased [Unknown]
  - Haematocrit decreased [Unknown]
  - Blood sodium decreased [Unknown]
  - Carbon dioxide decreased [Unknown]
  - Blood albumin decreased [Unknown]
  - Adverse drug reaction [Recovered/Resolved]
  - Alanine aminotransferase increased [Unknown]

NARRATIVE: CASE EVENT DATE: 20250501
